FAERS Safety Report 6334505-3 (Version None)
Quarter: 2009Q3

REPORT INFORMATION
  Report Type: 
  Country: None (occurrence: None)
  Receive Date: 20090831
  Receipt Date: 20090824
  Transmission Date: 20100115
  Serious: Yes (Other)
  Sender: FDA-Public Use
  Company Number: KP-AMGEN-US362067

PATIENT
  Age: 58 Year
  Sex: Female

DRUGS (10)
  1. ARANESP [Suspect]
     Indication: ANAEMIA
     Route: 065
  2. FOSINOPRIL SODIUM [Suspect]
  3. AMLODIPINE BESYLATE [Concomitant]
     Dates: start: 20090715
  4. CARVEDILOL [Concomitant]
     Dates: start: 20090715
  5. VALSARTAN [Concomitant]
     Dates: start: 20090715
  6. DOXAZOSIN [Concomitant]
     Dates: start: 20090715
  7. GLIMEPIRIDE [Concomitant]
     Dates: start: 20090715
  8. FERROUS SULFATE TAB [Concomitant]
     Dates: start: 20090715
  9. FUROSEMIDE [Concomitant]
     Dates: start: 20090715
  10. UNSPECIFIED ANTIDIABETIC AGENT [Concomitant]
     Dates: start: 20090715

REACTIONS (1)
  - ANAEMIA [None]
